FAERS Safety Report 4338897-6 (Version None)
Quarter: 2004Q2

REPORT INFORMATION
  Report Type: 
  Country: None (occurrence: None)
  Receive Date: 20040409
  Receipt Date: 20040329
  Transmission Date: 20050107
  Serious: Yes (Hospitalization)
  Sender: FDA-Public Use
  Company Number: 2004206767GB

PATIENT
  Age: 69 Year
  Sex: Female

DRUGS (2)
  1. CELECOXIB (CELECOXIB)CAPSULE [Suspect]
     Indication: BREAST CANCER
     Dosage: 400 MG, BID, ORAL
     Route: 048
     Dates: start: 20030711
  2. AROMASIN [Suspect]
     Indication: BREAST CANCER
     Dosage: 25 MG, QD, ORAL
     Route: 048
     Dates: start: 20030711

REACTIONS (2)
  - PNEUMONIA [None]
  - VAGINAL HAEMORRHAGE [None]
